FAERS Safety Report 23452962 (Version 7)
Quarter: 2024Q4

REPORT INFORMATION
  Report Type: Spontaneous
  Country: US (occurrence: US)
  Receive Date: 20240129
  Receipt Date: 20241202
  Transmission Date: 20250115
  Serious: Yes (Death, Other)
  Sender: PFIZER
  Company Number: US-PFIZER INC-PV202200086697

PATIENT
  Age: 87 Year
  Sex: Male

DRUGS (7)
  1. BRAFTOVI [Suspect]
     Active Substance: ENCORAFENIB
     Indication: Metastatic squamous cell carcinoma
     Dosage: 450 MG, DAILY (#30)
  2. BRAFTOVI [Suspect]
     Active Substance: ENCORAFENIB
     Indication: Squamous cell carcinoma of the parotid gland
     Dosage: 75 MG, 1X/DAY (1 CAP)
     Route: 048
  3. BRAFTOVI [Suspect]
     Active Substance: ENCORAFENIB
     Dosage: 375 MG, DAILY (5 CAPS)
     Route: 048
  4. BRAFTOVI [Suspect]
     Active Substance: ENCORAFENIB
     Dosage: 75 MG
  5. MEKTOVI [Suspect]
     Active Substance: BINIMETINIB
     Indication: Metastatic squamous cell carcinoma
     Dosage: 45 MG, 2X/DAY (#60)
  6. MEKTOVI [Suspect]
     Active Substance: BINIMETINIB
     Indication: Squamous cell carcinoma of the parotid gland
     Dosage: 2 TABLETS, EVERY 12 HRS
     Route: 048
  7. MEKTOVI [Suspect]
     Active Substance: BINIMETINIB
     Dosage: 15 MG

REACTIONS (2)
  - Death [Fatal]
  - Off label use [Unknown]

NARRATIVE: CASE EVENT DATE: 20240821
